FAERS Safety Report 7829134-6 (Version None)
Quarter: 2011Q4

REPORT INFORMATION
  Report Type: 
  Country: None (occurrence: None)
  Receive Date: 20111020
  Receipt Date: 20111011
  Transmission Date: 20120403
  Serious: Yes (Other)
  Sender: FDA-Public Use
  Company Number: PHHY2011FR91018

PATIENT
  Sex: Male

DRUGS (3)
  1. RASILEZ [Suspect]
     Indication: HYPERTENSION
     Dosage: 150 MG, QD
     Dates: start: 20110106, end: 20110510
  2. GLICLAZIDE [Concomitant]
  3. CADUET [Concomitant]

REACTIONS (6)
  - SWELLING FACE [None]
  - RIGHT VENTRICULAR FAILURE [None]
  - OEDEMA PERIPHERAL [None]
  - FATIGUE [None]
  - OEDEMA [None]
  - BLOOD PRESSURE INCREASED [None]
